FAERS Safety Report 5177154-5 (Version None)
Quarter: 2006Q4

REPORT INFORMATION
  Report Type: 
  Country: None (occurrence: None)
  Receive Date: 20061218
  Receipt Date: 20061124
  Transmission Date: 20070319
  Serious: Yes (Other)
  Sender: FDA-Public Use
  Company Number: JP-ROCHE-472981

PATIENT
  Age: 65 Year
  Sex: Male

DRUGS (3)
  1. PEGASYS [Suspect]
     Route: 058
     Dates: start: 20060623
  2. PEGASYS [Suspect]
     Route: 058
  3. HALFDIGOXIN KY [Concomitant]
     Dosage: DRUG REPORTED AS HALFDIGOXIN (DIGOXIN).
     Route: 048
     Dates: start: 20061116

REACTIONS (3)
  - ATRIAL FIBRILLATION [None]
  - PLATELET COUNT DECREASED [None]
  - RASH [None]
